FAERS Safety Report 9254022 (Version 3)
Quarter: 2013Q2

REPORT INFORMATION
  Report Type: Spontaneous
  Country: AT (occurrence: AT)
  Receive Date: 20130425
  Receipt Date: 20130626
  Transmission Date: 20140414
  Serious: Yes (Hospitalization)
  Sender: FDA-Public Use
  Company Number: AT-SANOFI-AVENTIS-2013SA040069

PATIENT
  Age: 70 Year
  Sex: Female
  Weight: 62 kg

DRUGS (5)
  1. LOVENOX [Suspect]
     Indication: PRODUCT USED FOR UNKNOWN INDICATION
     Route: 065
  2. DEFLAMAT [Suspect]
     Indication: PRODUCT USED FOR UNKNOWN INDICATION
     Route: 065
  3. TRASTUZUMAB EMTANSINE [Concomitant]
     Dosage: 3.6 MG/KG
     Route: 042
     Dates: start: 20130219, end: 20130403
  4. DIPYRONE [Concomitant]
     Dates: start: 20120405
  5. NEURONTIN [Concomitant]
     Dates: start: 20120406

REACTIONS (1)
  - Pathological fracture [Recovered/Resolved]
